FAERS Safety Report 10471226 (Version 1)
Quarter: 2014Q3

REPORT INFORMATION
  Report Type: Spontaneous
  Country: US (occurrence: US)
  Receive Date: 20140923
  Receipt Date: 20140923
  Transmission Date: 20150326
  Serious: No
  Sender: FDA-Public Use
  Company Number: US-ENDO PHARMACEUTICALS INC.-OPCR20140190

PATIENT
  Sex: Female

DRUGS (2)
  1. OPANA ER [Concomitant]
     Active Substance: OXYMORPHONE HYDROCHLORIDE
     Indication: MIGRAINE
     Route: 048
     Dates: start: 2011
  2. OPANA ER [Suspect]
     Active Substance: OXYMORPHONE HYDROCHLORIDE
     Indication: MIGRAINE
     Route: 048
     Dates: end: 20140719

REACTIONS (2)
  - Withdrawal syndrome [Not Recovered/Not Resolved]
  - Drug ineffective [Not Recovered/Not Resolved]

NARRATIVE: CASE EVENT DATE: 20140719
